FAERS Safety Report 5806663-8 (Version None)
Quarter: 2008Q3

REPORT INFORMATION
  Report Type: 
  Country: None (occurrence: None)
  Receive Date: 20080710
  Receipt Date: 20080630
  Transmission Date: 20090109
  Serious: Yes (Other)
  Sender: FDA-Public Use
  Company Number: US-MERCK-0807USA01264

PATIENT
  Age: 47 Year
  Sex: Male

DRUGS (1)
  1. PRINIVIL [Suspect]
     Route: 048
     Dates: start: 19970101

REACTIONS (6)
  - ASTHENIA [None]
  - BALANCE DISORDER [None]
  - COMA [None]
  - CONVULSION [None]
  - DIASTOLIC HYPERTENSION [None]
  - MENTAL STATUS CHANGES [None]
